FAERS Safety Report 19211508 (Version 1)
Quarter: 2021Q2

REPORT INFORMATION
  Report Type: Spontaneous
  Country: US (occurrence: US)
  Receive Date: 20210504
  Receipt Date: 20210504
  Transmission Date: 20210717
  Serious: No
  Sender: FDA-Public Use
  Company Number: US-ADAREPHARM-2021-US-000010

PATIENT
  Age: 11 Year
  Sex: Male

DRUGS (1)
  1. DEXMETHYLPHENIDATE HCL [Suspect]
     Active Substance: DEXMETHYLPHENIDATE HYDROCHLORIDE
     Indication: ATTENTION DEFICIT HYPERACTIVITY DISORDER
     Dosage: THERE WERE SOME DAYS THAT THE PATIENT DID NOT RECEIVE THE MEDICATION
     Dates: start: 202101

REACTIONS (3)
  - Inappropriate schedule of product administration [Recovered/Resolved]
  - Drug ineffective [Recovered/Resolved]
  - Product complaint [Not Recovered/Not Resolved]
